FAERS Safety Report 4847415-5 (Version None)
Quarter: 2005Q4

REPORT INFORMATION
  Report Type: 
  Country: None (occurrence: None)
  Receive Date: 20051205
  Receipt Date: 20051122
  Transmission Date: 20060501
  Serious: Yes (Hospitalization)
  Sender: FDA-Public Use
  Company Number: 2005121591

PATIENT
  Age: 58 Year
  Sex: Female
  Weight: 64.4108 kg

DRUGS (6)
  1. NICOTROL [Suspect]
     Indication: SMOKING CESSATION THERAPY
     Dosage: 1 CARTRIDGE ONCE DAILY, INHALATION
     Route: 055
     Dates: start: 20031223, end: 20050829
  2. PANTOPRAZOLE SODIUM [Concomitant]
  3. LOMOTIL [Concomitant]
  4. FAMOTIDINE [Concomitant]
  5. GAVISCON [Concomitant]
  6. MYLANTA (ALUMINIUM HYDROXIDE GEL, DRIED, MAGNESIUM HYDROXIDE, SIMETICO [Concomitant]

REACTIONS (10)
  - ALOPECIA [None]
  - ANORECTAL OPERATION [None]
  - DEHYDRATION [None]
  - DIARRHOEA [None]
  - DYSPNOEA [None]
  - NAIL DISCOLOURATION [None]
  - NAIL GROWTH ABNORMAL [None]
  - NAUSEA [None]
  - POST PROCEDURAL COMPLICATION [None]
  - RESPIRATORY DISORDER [None]
